FAERS Safety Report 5089106-4 (Version None)
Quarter: 2006Q3

REPORT INFORMATION
  Report Type: 
  Country: None (occurrence: None)
  Receive Date: 20060727
  Receipt Date: 20060626
  Transmission Date: 20061208
  Serious: Yes (Other)
  Sender: FDA-Public Use
  Company Number: 2006081252

PATIENT
  Age: 29 Year
  Sex: Male
  Weight: 84.369 kg

DRUGS (2)
  1. LYRICA [Suspect]
     Indication: NEUROPATHY
     Dosage: 50 MG (50 MG, 1 IN 1 D), UNKNOWN
     Dates: start: 20060601
  2. ZYRTEC [Concomitant]

REACTIONS (1)
  - BLEPHAROSPASM [None]
